FAERS Safety Report 19883482 (Version 1)
Quarter: 2021Q3

REPORT INFORMATION
  Report Type: Report from Study
  Country: None (occurrence: US)
  Receive Date: 20210926
  Receipt Date: 20210926
  Transmission Date: 20211014
  Serious: Yes (Death)
  Sender: FDA-Public Use
  Company Number: US-ABBVIE-21K-163-4094713-00

PATIENT
  Age: 56 Year
  Sex: Male
  Weight: 86.26 kg

DRUGS (3)
  1. LASIX [Concomitant]
     Active Substance: FUROSEMIDE
     Indication: DIURETIC THERAPY
  2. MAVYRET [Suspect]
     Active Substance: GLECAPREVIR\PIBRENTASVIR
     Indication: HEPATITIS C
     Dosage: 3 TABLETS IN THE MORNING
     Route: 048
     Dates: start: 20210904, end: 20210906
  3. JANSSEN COVID?19 VACCINE [Concomitant]
     Active Substance: AD26.COV2.S
     Indication: COVID-19 IMMUNISATION
     Route: 030
     Dates: start: 20210515, end: 20210515

REACTIONS (3)
  - Splenic rupture [Fatal]
  - Haemorrhage [Fatal]
  - Accident [Fatal]

NARRATIVE: CASE EVENT DATE: 20210906
